FAERS Safety Report 23682678 (Version 1)
Quarter: 2024Q1

REPORT INFORMATION
  Report Type: Spontaneous
  Country: US (occurrence: None)
  Receive Date: 20240327
  Receipt Date: 20240327
  Transmission Date: 20240409
  Serious: Yes (Other)
  Sender: FDA-Public Use
  Company Number: None

PATIENT
  Age: 90 Year
  Sex: Female
  Weight: 63.81 kg

DRUGS (21)
  1. REVLIMID [Suspect]
     Active Substance: LENALIDOMIDE
     Indication: Plasma cell myeloma
     Dosage: FREQUENCY : DAILY;?
     Route: 048
     Dates: start: 20240307, end: 20240327
  2. DARZALEX [Concomitant]
     Active Substance: DARATUMUMAB
  3. OCTAGAM IMMUNE GLOBULIN (HUMAN) [Concomitant]
     Active Substance: HUMAN IMMUNOGLOBULIN G
  4. XGEVA [Concomitant]
     Active Substance: DENOSUMAB
  5. AMLODIPINE [Concomitant]
     Active Substance: AMLODIPINE BESYLATE
  6. B12 5,000 mcg-100 mcg sublingual lozenge [Concomitant]
  7. Benadryl Allergy 25 mg tablet [Concomitant]
  8. Co Q-10 10 mg capsule [Concomitant]
  9. DEXAMETHASONE [Concomitant]
     Active Substance: DEXAMETHASONE
  10. ELIQUIS [Concomitant]
     Active Substance: APIXABAN
  11. hemp extract 540 [Concomitant]
  12. ivermectin 3 mg table [Concomitant]
  13. Lasix 20 mg tablet [Concomitant]
  14. LIOTHYRONINE 5MCG TABLETS [Concomitant]
  15. LOSARTAN [Concomitant]
     Active Substance: LOSARTAN
  16. magnesium 250 mg tablet [Concomitant]
  17. nystatin 100,000 unit/gram topical powde [Concomitant]
  18. ondansetron 8 mg disintegrating tablet [Concomitant]
  19. Red Yeast Rice 600mg [Concomitant]
  20. symbicort dose unknown [Concomitant]
  21. VITAMIN D3 [Concomitant]
     Active Substance: CHOLECALCIFEROL

REACTIONS (1)
  - Drug hypersensitivity [None]

NARRATIVE: CASE EVENT DATE: 20240327
